FAERS Safety Report 6303044-8 (Version None)
Quarter: 2009Q3

REPORT INFORMATION
  Report Type: 
  Country: None (occurrence: None)
  Receive Date: 20090810
  Receipt Date: 20090615
  Transmission Date: 20100115
  Serious: No
  Sender: FDA-Public Use
  Company Number: US-BAYER-200924179NA

PATIENT
  Age: 46 Year
  Sex: Female
  Weight: 64 kg

DRUGS (2)
  1. MAGNEVIST [Suspect]
     Indication: ANGIOGRAM
     Dosage: TOTAL DAILY DOSE: 2 ML  UNIT DOSE: 5 ML
     Route: 042
     Dates: start: 20090615, end: 20090615
  2. ATIVAN [Concomitant]

REACTIONS (1)
  - THROAT IRRITATION [None]
